FAERS Safety Report 18303120 (Version 1)
Quarter: 2020Q3

REPORT INFORMATION
  Report Type: Report from Study
  Country: US (occurrence: US)
  Receive Date: 20200923
  Receipt Date: 20200923
  Transmission Date: 20201103
  Serious: Yes (Hospitalization)
  Sender: FDA-Public Use
  Company Number: US-EISAI MEDICAL RESEARCH-EC-2020-080721

PATIENT
  Age: 49 Year
  Sex: Female
  Weight: 56.6 kg

DRUGS (1)
  1. LENVIMA [Suspect]
     Active Substance: LENVATINIB
     Indication: ENDOMETRIAL NEOPLASM
     Route: 048
     Dates: start: 20200829, end: 202009

REACTIONS (8)
  - Dysphonia [Unknown]
  - Blood pressure increased [Unknown]
  - Cognitive disorder [Recovered/Resolved]
  - Pyrexia [Unknown]
  - Insomnia [Unknown]
  - Headache [Unknown]
  - Confusional state [Recovered/Resolved]
  - Rash [Unknown]

NARRATIVE: CASE EVENT DATE: 202009
